FAERS Safety Report 4701506-8 (Version None)
Quarter: 2005Q2

REPORT INFORMATION
  Report Type: 
  Country: None (occurrence: None)
  Receive Date: 20050627
  Receipt Date: 20050616
  Transmission Date: 20051028
  Serious: Yes (Hospitalization)
  Sender: FDA-Public Use
  Company Number: TPG2005A00213

PATIENT
  Age: 72 Year
  Sex: Female

DRUGS (5)
  1. ACTOS [Suspect]
     Indication: DIABETES MELLITUS NON-INSULIN-DEPENDENT
     Dosage: 30 MG (30 MG, 1 IN 1 D), PER ORAL
     Route: 048
     Dates: start: 20040101
  2. RAMIPRIL COMP (RAMIPRIL) [Concomitant]
  3. COMP (HYDROCHLOROTHIAZIDE) [Concomitant]
  4. ALLOPURINOL [Concomitant]
  5. METFORMIN (METFORMIN) [Concomitant]

REACTIONS (3)
  - ANURIA [None]
  - HYPOKALAEMIA [None]
  - RENAL FAILURE ACUTE [None]
